FAERS Safety Report 7057566-5 (Version None)
Quarter: 2010Q4

REPORT INFORMATION
  Report Type: 
  Country: None (occurrence: None)
  Receive Date: 20101022
  Receipt Date: 20101012
  Transmission Date: 20110411
  Serious: Yes (Hospitalization)
  Sender: FDA-Public Use
  Company Number: JP-ROCHE-728394

PATIENT
  Sex: Male
  Weight: 49 kg

DRUGS (14)
  1. XELODA [Suspect]
     Indication: COLON CANCER METASTATIC
     Dosage: DRUG NAME:XELODA 300(CAPECITABINE)
     Route: 048
     Dates: start: 20100609, end: 20100618
  2. XELODA [Suspect]
     Route: 048
     Dates: start: 20100702, end: 20100716
  3. XELODA [Suspect]
     Route: 048
     Dates: start: 20100816, end: 20100830
  4. AVASTIN [Suspect]
     Indication: COLON CANCER METASTATIC
     Route: 041
     Dates: start: 20100609, end: 20100609
  5. AVASTIN [Suspect]
     Route: 041
     Dates: start: 20100702, end: 20100702
  6. AVASTIN [Suspect]
     Route: 041
     Dates: start: 20100805, end: 20100805
  7. AVASTIN [Suspect]
     Route: 041
     Dates: start: 20100816, end: 20100816
  8. OXALIPLATIN [Suspect]
     Indication: COLON CANCER METASTATIC
     Route: 042
     Dates: start: 20100609, end: 20100609
  9. OXALIPLATIN [Suspect]
     Route: 042
     Dates: start: 20100702, end: 20100702
  10. OXALIPLATIN [Suspect]
     Route: 042
     Dates: start: 20100816, end: 20100816
  11. DEXAMETHASONE [Suspect]
     Indication: PROPHYLAXIS
     Route: 048
     Dates: start: 20100608
  12. DEXAMETHASONE SODIUM PHOSPHATE [Suspect]
     Indication: PROPHYLAXIS
     Route: 041
  13. GASTER [Concomitant]
     Dosage: DOSE FORM: PERORAL AGENT
     Route: 048
     Dates: start: 20100630
  14. FERO-GRADUMET [Concomitant]
     Route: 048
     Dates: start: 20100622

REACTIONS (2)
  - GASTRIC ULCER [None]
  - GASTRIC ULCER HAEMORRHAGE [None]
